FAERS Safety Report 9473346 (Version 1)
Quarter: 2013Q3

REPORT INFORMATION
  Report Type: Spontaneous
  Country: US (occurrence: US)
  Receive Date: 20130823
  Receipt Date: 20130823
  Transmission Date: 20140515
  Serious: No
  Sender: FDA-Public Use
  Company Number: US-BRISTOL-MYERS SQUIBB COMPANY-18904532

PATIENT
  Age: 63 Year
  Sex: Female

DRUGS (8)
  1. SPRYCEL [Suspect]
     Indication: CHRONIC MYELOID LEUKAEMIA
     Route: 048
     Dates: start: 20130511
  2. MULTIVITAMIN [Concomitant]
  3. SYNTHROID [Concomitant]
  4. ATACAND [Concomitant]
  5. FISH OIL [Concomitant]
  6. VYTORIN [Concomitant]
  7. CALCIUM [Concomitant]
  8. LEVOTHYROXINE [Concomitant]

REACTIONS (1)
  - Headache [Unknown]
